FAERS Safety Report 6120159-8 (Version None)
Quarter: 2009Q1

REPORT INFORMATION
  Report Type: 
  Country: None (occurrence: None)
  Receive Date: 20090316
  Receipt Date: 20090126
  Transmission Date: 20090719
  Serious: No
  Sender: FDA-Public Use
  Company Number: US-ABBOTT-09P-163-0500158-00

PATIENT
  Sex: Female
  Weight: 113.5 kg

DRUGS (1)
  1. TRILIPIX [Suspect]
     Indication: BLOOD TRIGLYCERIDES INCREASED
     Route: 048
     Dates: start: 20090124, end: 20090124

REACTIONS (1)
  - SKIN BURNING SENSATION [None]
